FAERS Safety Report 11438980 (Version 1)
Quarter: 2015Q3

REPORT INFORMATION
  Report Type: Spontaneous
  Country: JP (occurrence: None)
  Receive Date: 20150828
  Receipt Date: 20150828
  Transmission Date: 20151125
  Serious: Yes (Other)
  Sender: FDA-Public Use
  Company Number: COR_00360_2015

PATIENT
  Age: 58 Year
  Sex: Male

DRUGS (3)
  1. ETOPOSIDE (ETOPOSIDE) [Suspect]
     Active Substance: ETOPOSIDE
     Dosage: 1 COURSE INTRAVENOUS (NOT OTHERWISE SPECIFIED)
     Route: 042
  2. METHOTREXATE (METHOTREXATE) [Suspect]
     Active Substance: METHOTREXATE
     Indication: DIFFUSE LARGE B-CELL LYMPHOMA
     Dosage: 1 COURSE INTRAVENOUS (NOT OTHERWISE SPECIFIED)?
     Route: 042
  3. IFOSFAMIDE (IFOSFAMIDE) [Suspect]
     Active Substance: IFOSFAMIDE
     Indication: DIFFUSE LARGE B-CELL LYMPHOMA
     Dosage: 1 COURSE INTRAVENOUS (NOT OTHERWISE SPECIFIED)
     Route: 042

REACTIONS (2)
  - Febrile neutropenia [None]
  - Systemic mycosis [None]
